FAERS Safety Report 16700602 (Version 1)
Quarter: 2019Q3

REPORT INFORMATION
  Report Type: Spontaneous
  Country: US (occurrence: US)
  Receive Date: 20190814
  Receipt Date: 20190814
  Transmission Date: 20191004
  Serious: Yes (Hospitalization)
  Sender: FDA-Public Use
  Company Number: US-GLAXOSMITHKLINE-US2019143757

PATIENT
  Age: 89 Year
  Sex: Female

DRUGS (1)
  1. SENSODYNE TRUE WHITE [Suspect]
     Active Substance: POTASSIUM NITRATE\SODIUM FLUORIDE
     Indication: HYPERAESTHESIA TEETH
     Dosage: UNK UNK, TID
     Dates: start: 201907

REACTIONS (3)
  - Tongue operation [Recovering/Resolving]
  - Scar [Recovering/Resolving]
  - Glossitis [Recovering/Resolving]
